FAERS Safety Report 4363009-2 (Version None)
Quarter: 2004Q2

REPORT INFORMATION
  Report Type: 
  Country: None (occurrence: None)
  Receive Date: 20040518
  Receipt Date: 20040505
  Transmission Date: 20050107
  Serious: Yes (Hospitalization)
  Sender: FDA-Public Use
  Company Number: ZANA001306

PATIENT
  Age: 83 Year
  Sex: Male

DRUGS (7)
  1. TIZANIDINE HCL [Suspect]
     Indication: ARTHRALGIA
     Dosage: 2 MG/D ORAL
     Route: 048
     Dates: start: 20040227, end: 20040410
  2. TRASICOR (OXPRENOLOL HYDROCHLORIDE) [Suspect]
     Indication: HYPERTENSION
     Dosage: 20 MG/D ORAL
     Route: 048
     Dates: end: 20040410
  3. ALZODONE (BUTIZIDE) [Suspect]
     Indication: OEDEMA PERIPHERAL
     Dosage: 27.5 MG, QW3 ORAL
     Route: 048
     Dates: end: 20040410
  4. CELEBREX [Suspect]
     Indication: ARTHRALGIA
     Dosage: 200 MG/D ORAL
     Route: 048
     Dates: start: 20040227, end: 20040410
  5. VIOXX [Suspect]
     Dosage: ORAL
     Route: 048
     Dates: start: 20040206, end: 20040226
  6. BECOZYME FORTE (PYRIDOXINE) [Concomitant]
  7. BIOFLORIN (LACTOBACILLUS ACIDOPHILUS) [Concomitant]

REACTIONS (6)
  - ARTHRALGIA [None]
  - BACTERIA URINE IDENTIFIED [None]
  - DIARRHOEA [None]
  - DRUG INTERACTION [None]
  - PYELOCALIECTASIS [None]
  - RENAL FAILURE ACUTE [None]
